FAERS Safety Report 11368565 (Version 1)
Quarter: 2015Q3

REPORT INFORMATION
  Report Type: Spontaneous
  Country: US (occurrence: None)
  Receive Date: 20150811
  Receipt Date: 20150811
  Transmission Date: 20151125
  Serious: No
  Sender: FDA-Public Use
  Company Number: None

PATIENT
  Age: 78 Year
  Sex: Female
  Weight: 57.15 kg

DRUGS (4)
  1. NEW ENALAPRIL [Concomitant]
  2. ARMOUR^S THYROID [Concomitant]
  3. RAMIPRIL 1.25 CADILA HEALTHCARE(INDIA) DISTRIBUTED BY ZYDUS VIA WALGREE [Suspect]
     Active Substance: RAMIPRIL
     Indication: HYPERTENSION
     Dosage: 1.25?TWICE DAILY?BY MOUTH
     Route: 048
     Dates: start: 20150606, end: 20150608
  4. CALTRATE WITH VITAMIN D [Concomitant]
     Active Substance: CALCIUM CARBONATE\VITAMIN D

REACTIONS (5)
  - Nausea [None]
  - Gait disturbance [None]
  - Tinnitus [None]
  - Pruritus [None]
  - Dizziness [None]

NARRATIVE: CASE EVENT DATE: 20150606
